FAERS Safety Report 5020737-3 (Version None)
Quarter: 2006Q2

REPORT INFORMATION
  Report Type: 
  Country: None (occurrence: None)
  Receive Date: 20060601
  Receipt Date: 20060519
  Transmission Date: 20061013
  Serious: Yes (Hospitalization)
  Sender: FDA-Public Use
  Company Number: 14117

PATIENT
  Age: 58 Year
  Sex: Male
  Weight: 89 kg

DRUGS (7)
  1. CARBOPLATIN [Suspect]
     Indication: NON-SMALL CELL LUNG CANCER
     Dosage: 900 MG IV
     Route: 042
     Dates: start: 20060131, end: 20060131
  2. ETOPOSIDE [Suspect]
     Indication: NON-SMALL CELL LUNG CANCER
     Dosage: 240 MG IV
     Route: 042
     Dates: start: 20060131, end: 20060203
  3. SIMVASTATIN [Concomitant]
  4. NICORANDIL [Concomitant]
  5. ASPIRIN [Concomitant]
  6. METFORMIN [Concomitant]
  7. LANSOPRAZOLE [Concomitant]

REACTIONS (1)
  - NEUTROPENIC SEPSIS [None]
